FAERS Safety Report 13552045 (Version 1)
Quarter: 2017Q2

REPORT INFORMATION
  Report Type: Spontaneous
  Country: FR (occurrence: FR)
  Receive Date: 20170516
  Receipt Date: 20170516
  Transmission Date: 20170830
  Serious: Yes (Other)
  Sender: FDA-Public Use
  Company Number: FR-MERCK KGAA-2020846

PATIENT
  Age: 29 Year
  Sex: Male
  Weight: 73 kg

DRUGS (2)
  1. NOVOTHYROX [Suspect]
     Active Substance: LEVOTHYROXINE SODIUM
     Indication: PRODUCT USED FOR UNKNOWN INDICATION
     Dates: start: 2014
  2. NOVOTHYROX [Suspect]
     Active Substance: LEVOTHYROXINE SODIUM
     Dates: start: 2015

REACTIONS (9)
  - Malabsorption [Unknown]
  - Lymphadenopathy [Unknown]
  - Blood thyroid stimulating hormone abnormal [Unknown]
  - Lymph node pain [Unknown]
  - Eructation [Unknown]
  - Fatigue [Unknown]
  - Feeling cold [Unknown]
  - Wrong technique in product usage process [Unknown]
  - Thyroid cancer metastatic [Unknown]

NARRATIVE: CASE EVENT DATE: 2014
